FAERS Safety Report 7861502-9 (Version None)
Quarter: 2011Q4

REPORT INFORMATION
  Report Type: 
  Country: None (occurrence: None)
  Receive Date: 20111026
  Receipt Date: 20111014
  Transmission Date: 20120403
  Serious: Yes (Other)
  Sender: FDA-Public Use
  Company Number: DSA_47930_2011

PATIENT
  Sex: Female

DRUGS (9)
  1. TIKOSYN [Suspect]
     Indication: HEART DISEASE CONGENITAL
     Dosage: (250 UG BID), (250 UG QD)
     Dates: start: 20110627
  2. TIKOSYN [Suspect]
     Indication: ARRHYTHMIA
     Dosage: (250 UG BID), (250 UG QD)
     Dates: start: 20110627
  3. PRADAXA [Concomitant]
  4. VERAPAMIL [Concomitant]
  5. MULTAQ [Concomitant]
  6. CRESTOR [Concomitant]
  7. LASIX [Concomitant]
  8. QUINAPRIL [Concomitant]
  9. DILTIAZEM HYDROCHLORIDE [Suspect]
     Indication: PRODUCT USED FOR UNKNOWN INDICATION
     Dosage: (120 MG QD)
     Dates: start: 20110627

REACTIONS (3)
  - ELECTROCARDIOGRAM QT PROLONGED [None]
  - DRUG INEFFECTIVE [None]
  - NASOPHARYNGITIS [None]
